FAERS Safety Report 7932072-1 (Version None)
Quarter: 2011Q4

REPORT INFORMATION
  Report Type: 
  Country: None (occurrence: None)
  Receive Date: 20111121
  Receipt Date: 20111109
  Transmission Date: 20120403
  Serious: Yes (Other)
  Sender: FDA-Public Use
  Company Number: US-NOVOPROD-339301

PATIENT

DRUGS (1)
  1. LIRAGLUTIDE FLEXPEN [Suspect]
     Indication: OBESITY
     Route: 058

REACTIONS (1)
  - BILIARY COLIC [None]
